FAERS Safety Report 20764253 (Version 2)
Quarter: 2022Q2

REPORT INFORMATION
  Report Type: Spontaneous
  Country: HU (occurrence: HU)
  Receive Date: 20220428
  Receipt Date: 20220603
  Transmission Date: 20220721
  Serious: Yes (Life-Threatening, Other)
  Sender: FDA-Public Use
  Company Number: HU-002147023-NVSC2022HU081126

PATIENT
  Age: 52 Year
  Sex: Female

DRUGS (8)
  1. PANTOPRAZOLE [Suspect]
     Active Substance: PANTOPRAZOLE
     Indication: Gastrooesophageal reflux disease
     Dosage: UNK
     Route: 048
  2. RIBOCICLIB [Suspect]
     Active Substance: RIBOCICLIB
     Indication: Breast cancer
     Dosage: 400 MILLIGRAM, QD
     Route: 065
  3. RIBOCICLIB [Suspect]
     Active Substance: RIBOCICLIB
     Dosage: 600 MILLIGRAM, QD
     Route: 065
  4. IBANDRONIC ACID [Suspect]
     Active Substance: IBANDRONIC ACID
     Indication: Metastases to bone
     Dosage: 50 MILLIGRAM, QD
     Route: 065
     Dates: start: 202003
  5. LETROZOLE [Suspect]
     Active Substance: LETROZOLE
     Indication: Metastases to bone
     Dosage: 2.5 MILLIGRAM, QD
     Route: 048
     Dates: start: 2020
  6. FULVESTRANT [Suspect]
     Active Substance: FULVESTRANT
     Indication: Breast cancer
     Dosage: 500 MILLIGRAM
     Route: 030
     Dates: start: 2020
  7. ERGOCALCIFEROL [Concomitant]
     Active Substance: ERGOCALCIFEROL
     Dosage: UNK
     Route: 065
  8. CALCIUM [Concomitant]
     Active Substance: CALCIUM
     Dosage: UNK
     Route: 065

REACTIONS (11)
  - Intraductal proliferative breast lesion [Unknown]
  - Neutropenia [Recovering/Resolving]
  - Bone lesion [Not Recovered/Not Resolved]
  - Carcinoembryonic antigen increased [Unknown]
  - Bone pain [Recovered/Resolved]
  - Dorsal ramus syndrome [Unknown]
  - Headache [Unknown]
  - Hypertension [Unknown]
  - Menopausal symptoms [Unknown]
  - Diarrhoea [Unknown]
  - Disease progression [Recovering/Resolving]

NARRATIVE: CASE EVENT DATE: 20150101
